FAERS Safety Report 5289866-3 (Version None)
Quarter: 2007Q2

REPORT INFORMATION
  Report Type: 
  Country: None (occurrence: None)
  Receive Date: 20070406
  Receipt Date: 20070307
  Transmission Date: 20071010
  Serious: Yes (Hospitalization, Other)
  Sender: FDA-Public Use
  Company Number: US-PFIZER INC-2006120403

PATIENT
  Sex: Female

DRUGS (4)
  1. CELEBREX [Suspect]
     Indication: PAIN IN EXTREMITY
  2. CELEBREX [Suspect]
     Indication: POOR PERIPHERAL CIRCULATION
  3. BEXTRA [Suspect]
     Indication: PAIN IN EXTREMITY
     Dates: start: 20020101
  4. BEXTRA [Suspect]
     Indication: POOR PERIPHERAL CIRCULATION

REACTIONS (1)
  - CEREBROVASCULAR ACCIDENT [None]
